FAERS Safety Report 4735385-X (Version None)
Quarter: 2005Q3

REPORT INFORMATION
  Report Type: 
  Country: None (occurrence: None)
  Receive Date: 20050805
  Receipt Date: 20050725
  Transmission Date: 20060218
  Serious: Yes (Other)
  Sender: FDA-Public Use
  Company Number: JP-BRISTOL-MYERS SQUIBB COMPANY-13059191

PATIENT

DRUGS (1)
  1. SINEMET [Suspect]
     Dosage: DOSE VALUE:  200 TO 300 MG
     Route: 048

REACTIONS (3)
  - ANURIA [None]
  - NEUROLEPTIC MALIGNANT SYNDROME [None]
  - TREMOR [None]
